FAERS Safety Report 8069316-4 (Version None)
Quarter: 2012Q1

REPORT INFORMATION
  Report Type: 
  Country: None (occurrence: None)
  Receive Date: 20120125
  Receipt Date: 20120123
  Transmission Date: 20120608
  Serious: Yes (Death)
  Sender: FDA-Public Use
  Company Number: FI-JNJFOC-20120109705

PATIENT
  Age: 50 Year
  Sex: Female

DRUGS (5)
  1. RISPERDAL CONSTA [Suspect]
     Indication: SCHIZOAFFECTIVE DISORDER
     Route: 030
  2. MIRTAZAPINE [Concomitant]
     Route: 065
  3. ALCOHOL [Suspect]
     Indication: PRODUCT USED FOR UNKNOWN INDICATION
     Route: 065
  4. UNKNOWN MEDICATION [Concomitant]
     Indication: MENTAL DISORDER
     Route: 065
  5. UNKNOWN MEDICATION [Concomitant]
     Indication: PSYCHOTIC DISORDER
     Route: 065

REACTIONS (1)
  - DEATH [None]
